FAERS Safety Report 4734081-2 (Version None)
Quarter: 2005Q3

REPORT INFORMATION
  Report Type: 
  Country: None (occurrence: None)
  Receive Date: 20050803
  Receipt Date: 20050803
  Transmission Date: 20060218
  Serious: Yes (Other)
  Sender: FDA-Public Use
  Company Number: None

PATIENT
  Age: 49 Year
  Sex: Male
  Weight: 79.3795 kg

DRUGS (2)
  1. CIALIS [Suspect]
     Indication: ERECTILE DYSFUNCTION
     Dosage: 1 PILL TAKEN 1 TIME ORAL
     Route: 048
     Dates: start: 20050729, end: 20050729
  2. HYDROCO/PAP [Concomitant]

REACTIONS (5)
  - BACK PAIN [None]
  - HYPERHIDROSIS [None]
  - INSOMNIA [None]
  - TREMOR [None]
  - VOMITING [None]
